FAERS Safety Report 9313415 (Version 1)
Quarter: 2013Q2

REPORT INFORMATION
  Report Type: Spontaneous
  Country: US (occurrence: US)
  Receive Date: 20130528
  Receipt Date: 20130528
  Transmission Date: 20140414
  Serious: Yes (Death, Other)
  Sender: FDA-Public Use
  Company Number: PHHY2013US051532

PATIENT
  Age: 53 Year
  Sex: Female

DRUGS (8)
  1. ISONIAZID+PYRIDOXINE [Suspect]
  2. RIFAMPICIN [Suspect]
     Indication: TUBERCULOSIS
  3. PYRAZINAMIDE [Suspect]
     Indication: TUBERCULOSIS
  4. ETHAMBUTOL [Suspect]
     Indication: TUBERCULOSIS
  5. VANCOMYCIN [Concomitant]
  6. CEFTRIAXONE [Concomitant]
  7. METRONIDAZOLE [Concomitant]
  8. LINEZOLID [Concomitant]

REACTIONS (10)
  - Death [Fatal]
  - Hypotension [Unknown]
  - Septic shock [Unknown]
  - Respiratory failure [Unknown]
  - Renal failure acute [Unknown]
  - Hepatitis [Recovering/Resolving]
  - Pyrexia [Unknown]
  - Diarrhoea [Unknown]
  - Multi-organ failure [Unknown]
  - Rash [None]
